FAERS Safety Report 4676813-8 (Version None)
Quarter: 2005Q2

REPORT INFORMATION
  Report Type: 
  Country: None (occurrence: None)
  Receive Date: 20050527
  Receipt Date: 20050222
  Transmission Date: 20051028
  Serious: Yes (Hospitalization)
  Sender: FDA-Public Use
  Company Number: US-MERCK-0502USA03193

PATIENT
  Age: 70 Year
  Sex: Female
  Weight: 84 kg

DRUGS (12)
  1. VIOXX [Suspect]
     Indication: OSTEOARTHRITIS
     Route: 048
     Dates: start: 19990917, end: 19991109
  2. VIOXX [Suspect]
     Route: 048
     Dates: start: 19991110, end: 19991115
  3. VIOXX [Suspect]
     Route: 048
     Dates: start: 20000901, end: 20001002
  4. VIOXX [Suspect]
     Route: 048
     Dates: start: 20001127, end: 20010101
  5. VIOXX [Suspect]
     Route: 048
     Dates: end: 20010401
  6. CYCLOBENZAPRINE HYDROCHLORIDE [Concomitant]
     Route: 065
  7. TYLENOL (CAPLET) [Concomitant]
     Route: 065
  8. MEVACOR [Concomitant]
     Route: 065
     Dates: start: 20000101
  9. NASONEX [Concomitant]
     Route: 065
  10. CHLOROTHIAZIDE [Concomitant]
     Route: 065
  11. NORVASC [Concomitant]
     Route: 065
  12. BIAXIN [Concomitant]
     Route: 065

REACTIONS (40)
  - ABASIA [None]
  - ABDOMINAL DISCOMFORT [None]
  - ABDOMINAL PAIN [None]
  - ABDOMINAL PAIN UPPER [None]
  - ACTIVITIES OF DAILY LIVING IMPAIRED [None]
  - ANHEDONIA [None]
  - ANOREXIA [None]
  - ANXIETY [None]
  - BACK PAIN [None]
  - BLOOD PRESSURE INADEQUATELY CONTROLLED [None]
  - CARDIAC VALVE DISEASE [None]
  - CHEST PAIN [None]
  - CONDITION AGGRAVATED [None]
  - CORONARY ARTERY DISEASE [None]
  - DECREASED APPETITE [None]
  - DEPRESSION [None]
  - DIZZINESS [None]
  - EMOTIONAL DISTRESS [None]
  - EYE INFECTION VIRAL [None]
  - EYE PAIN [None]
  - FALL [None]
  - FIBROMYALGIA [None]
  - GASTRITIS [None]
  - HEADACHE [None]
  - HYPERCALCAEMIA [None]
  - INSOMNIA [None]
  - LACRIMATION INCREASED [None]
  - LUMBAR SPINAL STENOSIS [None]
  - MALAISE [None]
  - MUSCULOSKELETAL PAIN [None]
  - MYOCARDIAL INFARCTION [None]
  - NON-CARDIAC CHEST PAIN [None]
  - OSTEOARTHRITIS [None]
  - PAIN IN EXTREMITY [None]
  - PRURITUS [None]
  - RECTAL HAEMORRHAGE [None]
  - RHINORRHOEA [None]
  - STRESS [None]
  - VERTIGO [None]
  - WEIGHT DECREASED [None]
